FAERS Safety Report 10413861 (Version 2)
Quarter: 2014Q3

REPORT INFORMATION
  Report Type: Spontaneous
  Country: FR (occurrence: None)
  Receive Date: 20140825
  Receipt Date: 20140930
  Transmission Date: 20150326
  Serious: Yes (Hospitalization)
  Sender: FDA-Public Use
  Company Number: NGX_02537_2014

PATIENT
  Sex: Male

DRUGS (1)
  1. QUTENZA [Suspect]
     Active Substance: CAPSAICIN
     Indication: MATERNAL EXPOSURE DURING PREGNANCY
     Dosage: 1 DF (CUTANEOUS PATCH) TRANSPLACENTAL
     Route: 064
     Dates: start: 20130906, end: 20130906

REACTIONS (5)
  - Maternal drugs affecting foetus [None]
  - Caesarean section [None]
  - Hypoglycaemia neonatal [None]
  - Foetal hypokinesia [None]
  - Neonatal respiratory distress syndrome [None]

NARRATIVE: CASE EVENT DATE: 20131118
